FAERS Safety Report 5010866-2 (Version None)
Quarter: 2006Q2

REPORT INFORMATION
  Report Type: 
  Country: None (occurrence: None)
  Receive Date: 20060525
  Receipt Date: 20060516
  Transmission Date: 20061013
  Serious: Yes (Death)
  Sender: FDA-Public Use
  Company Number: FR-GLAXOSMITHKLINE-B0424616A

PATIENT
  Age: 85 Year
  Sex: Female
  Weight: 65 kg

DRUGS (6)
  1. AVANDIA [Suspect]
     Dosage: 2MG TWICE PER DAY
     Route: 048
     Dates: start: 20051217, end: 20060422
  2. GLUCOPHAGE [Concomitant]
     Dosage: 1000MG THREE TIMES PER DAY
     Route: 048
  3. DIAMICRON [Concomitant]
     Dosage: 80MG TWICE PER DAY
     Route: 048
  4. QUINAPRIL HYDROCHLORIDE AND HYDROCHLOROTHIAZDE [Concomitant]
     Route: 065
  5. LERCAN [Concomitant]
     Route: 065
  6. LODALES [Concomitant]
     Route: 065

REACTIONS (4)
  - DEATH [None]
  - DYSPNOEA [None]
  - MALNUTRITION [None]
  - WEIGHT DECREASED [None]
